FAERS Safety Report 17312770 (Version 1)
Quarter: 2020Q1

REPORT INFORMATION
  Report Type: Other
  Country: DE (occurrence: DE)
  Receive Date: 20200123
  Receipt Date: 20200123
  Transmission Date: 20200409
  Serious: Yes (Death, Life-Threatening, Hospitalization, Other)
  Sender: FDA-Public Use
  Company Number: DE-CELLTRION INC.-2020DE018118

PATIENT

DRUGS (50)
  1. RITUXIMAB (UNKNOWN) [Suspect]
     Active Substance: RITUXIMAB
     Dosage: 644 MG, UNK
     Route: 041
     Dates: start: 20190125, end: 20190125
  2. VINCRISTINE [Suspect]
     Active Substance: VINCRISTINE
     Dosage: 1 MG, (INFUSION RATE 6.6 ML/MIN FROM 10:10 TO 10:25)
     Route: 041
     Dates: start: 20181123, end: 20181123
  3. PREDNISONE. [Suspect]
     Active Substance: PREDNISONE
     Indication: DIFFUSE LARGE B-CELL LYMPHOMA
     Dosage: 500 MG, UNK
     Route: 048
     Dates: start: 20180104, end: 20180108
  4. PREDNISONE. [Suspect]
     Active Substance: PREDNISONE
     Dosage: 500 MG, UNK
     Route: 048
     Dates: start: 20181017, end: 20181021
  5. CYCLOPHOSPHAMIDE. [Suspect]
     Active Substance: CYCLOPHOSPHAMIDE
     Dosage: 690 MG, (INFUSION RATE 16.6 ML/MIN FROM 12:40 TO 13:40)
     Route: 041
     Dates: start: 20181123, end: 20181123
  6. BICALUTAMID [Concomitant]
     Active Substance: BICALUTAMIDE
     Indication: PROSTATE CANCER
     Dosage: UNK
     Route: 048
     Dates: start: 20181022
  7. FELOCOR [Concomitant]
     Indication: HYPERTENSION
     Dosage: UNK
     Route: 048
  8. RITUXIMAB (UNKNOWN) [Suspect]
     Active Substance: RITUXIMAB
     Dosage: 644 MG, UNK
     Route: 041
     Dates: start: 20181122, end: 20181122
  9. RITUXIMAB (UNKNOWN) [Suspect]
     Active Substance: RITUXIMAB
     Dosage: 644 MG, UNK
     Route: 041
     Dates: start: 20190104, end: 20190104
  10. DOXORUBICIN [Suspect]
     Active Substance: DOXORUBICIN
     Dosage: 43 MG, (INFUSION RATE 2.0 ML/MIN FROM 12:40 TO 13:45)
     Route: 041
     Dates: start: 20181102, end: 20181102
  11. PREDNISONE. [Suspect]
     Active Substance: PREDNISONE
     Dosage: 500 MG, UNK
     Route: 048
     Dates: start: 20181116, end: 20181120
  12. PREDNISONE. [Suspect]
     Active Substance: PREDNISONE
     Dosage: 500 MG, UNK
     Route: 048
     Dates: start: 20181122, end: 20181126
  13. PREDNISONE. [Suspect]
     Active Substance: PREDNISONE
     Dosage: 100 MG, UNK
     Route: 048
     Dates: start: 20190125, end: 20190129
  14. CYCLOPHOSPHAMIDE. [Suspect]
     Active Substance: CYCLOPHOSPHAMIDE
     Indication: DIFFUSE LARGE B-CELL LYMPHOMA
     Dosage: 690 MG, (INFUSION RATE 16.6 ML/MIN)
     Route: 041
     Dates: start: 20181018, end: 20181018
  15. CLEMASTINE [Concomitant]
     Active Substance: CLEMASTINE
     Indication: PROPHYLAXIS
     Dosage: UNK
     Route: 042
     Dates: start: 20181017, end: 20190125
  16. CAPTOPRIL. [Concomitant]
     Active Substance: CAPTOPRIL
     Indication: HYPERTENSION
     Dosage: UNK
     Route: 048
  17. MESNA. [Concomitant]
     Active Substance: MESNA
     Indication: PROPHYLAXIS
     Dosage: UNK
     Route: 042
     Dates: start: 20181017, end: 20181213
  18. RITUXIMAB (UNKNOWN) [Suspect]
     Active Substance: RITUXIMAB
     Dosage: 644 MG, UNK
     Route: 041
     Dates: start: 20190104, end: 20190104
  19. RITUXIMAB (UNKNOWN) [Suspect]
     Active Substance: RITUXIMAB
     Dosage: 644 MG, UNK
     Route: 041
     Dates: start: 20190125, end: 20190125
  20. RITUXIMAB (UNKNOWN) [Suspect]
     Active Substance: RITUXIMAB
     Dosage: 644 MG, UNK
     Route: 041
     Dates: start: 20190125, end: 20190125
  21. VINCRISTINE [Suspect]
     Active Substance: VINCRISTINE
     Indication: DIFFUSE LARGE B-CELL LYMPHOMA
     Dosage: 1 MG, (INFUSION RATE 6.6 ML/MIN)
     Route: 041
     Dates: start: 20181018, end: 20181018
  22. DOXORUBICIN [Suspect]
     Active Substance: DOXORUBICIN
     Dosage: 43 MG, (INFUSION RATE 2.0 ML/MIN FROM 13:13 TO 14:20)
     Route: 041
     Dates: start: 20181214, end: 20181214
  23. CYCLOPHOSPHAMIDE. [Suspect]
     Active Substance: CYCLOPHOSPHAMIDE
     Dosage: 690 MG, (INFUSION RATE 16.6 ML/MIN FROM 13:45 TO 14:55)
     Route: 041
     Dates: start: 20181102, end: 20181102
  24. PARACETAMOL [Concomitant]
     Active Substance: ACETAMINOPHEN
     Indication: PROPHYLAXIS
     Dosage: UNK
     Route: 048
     Dates: start: 20181017
  25. GLIBENCLAMID [Concomitant]
     Active Substance: GLYBURIDE
     Indication: DIABETES MELLITUS
     Dosage: UNK
     Route: 048
  26. VITAMIN D3 [Concomitant]
     Active Substance: CHOLECALCIFEROL
     Indication: PROSTATE CANCER
     Dosage: UNK
     Route: 048
     Dates: start: 20181022
  27. RITUXIMAB (UNKNOWN) [Suspect]
     Active Substance: RITUXIMAB
     Dosage: 644 MG, UNK
     Route: 041
     Dates: start: 20181101, end: 20181101
  28. ALLOPURINOL. [Concomitant]
     Active Substance: ALLOPURINOL
     Indication: HYPERURICAEMIA
     Dosage: UNK
     Route: 048
  29. VINCRISTINE [Suspect]
     Active Substance: VINCRISTINE
     Dosage: 1 MG, (INFUSION RATE 6.6 ML/MIN FROM 12:25 TO 12:40)
     Route: 041
     Dates: start: 20181102, end: 20181102
  30. PREDNISONE. [Suspect]
     Active Substance: PREDNISONE
     Dosage: 500 MG, UNK
     Route: 048
     Dates: start: 20181101, end: 20181105
  31. PREDNISONE. [Suspect]
     Active Substance: PREDNISONE
     Dosage: 500 MG, UNK
     Route: 048
     Dates: start: 20181213
  32. PREDNISONE. [Suspect]
     Active Substance: PREDNISONE
     Dosage: 500 MG, UNK
     Route: 048
     Dates: start: 20190104, end: 20190108
  33. METAMIZOLE [Concomitant]
     Active Substance: METAMIZOLE
     Indication: PRODUCT USED FOR UNKNOWN INDICATION
     Dosage: UNK
     Route: 048
     Dates: start: 20181022
  34. ONDANSETRON [Concomitant]
     Active Substance: ONDANSETRON
     Indication: PROPHYLAXIS
     Dosage: UNK
     Route: 042
     Dates: start: 20181017, end: 20181213
  35. RITUXIMAB (UNKNOWN) [Suspect]
     Active Substance: RITUXIMAB
     Dosage: 644 MG, UNK
     Route: 041
     Dates: start: 20181017, end: 20181017
  36. RITUXIMAB (UNKNOWN) [Suspect]
     Active Substance: RITUXIMAB
     Dosage: 644 MG, UNK
     Route: 041
     Dates: start: 20181122, end: 20181122
  37. DOXORUBICIN [Suspect]
     Active Substance: DOXORUBICIN
     Dosage: 43 MG, (INFUSION RATE 2.0 ML/MIN FROM 10:30 TO 11:40)
     Route: 041
     Dates: start: 20181123, end: 20181123
  38. METFORMIN [Concomitant]
     Active Substance: METFORMIN HYDROCHLORIDE
     Indication: DIABETES MELLITUS
     Dosage: UNK
     Route: 048
  39. METOCLOPRAMID [Concomitant]
     Active Substance: METOCLOPRAMIDE
     Indication: PROPHYLAXIS
     Dosage: UNK
     Route: 048
     Dates: start: 20181019, end: 20181207
  40. RITUXIMAB (UNKNOWN) [Suspect]
     Active Substance: RITUXIMAB
     Indication: DIFFUSE LARGE B-CELL LYMPHOMA
     Dosage: 644 MG, UNK
     Route: 041
     Dates: start: 20181017, end: 20181017
  41. RITUXIMAB (UNKNOWN) [Suspect]
     Active Substance: RITUXIMAB
     Dosage: 644 MG, UNK
     Route: 041
     Dates: start: 20181213, end: 20181213
  42. CYCLOPHOSPHAMIDE. [Suspect]
     Active Substance: CYCLOPHOSPHAMIDE
     Dosage: 690 MG, (INFUSION RATE 16.6 ML/MIN FROM 14:30 TO 15:35)
     Route: 041
     Dates: start: 20181214, end: 20181214
  43. INSULIN [Concomitant]
     Active Substance: INSULIN NOS
     Indication: DIABETES MELLITUS
     Dosage: UNK
     Route: 058
  44. RANITIDIN [Concomitant]
     Active Substance: RANITIDINE HYDROCHLORIDE
     Indication: PROPHYLAXIS
     Dosage: UNK
     Route: 042
     Dates: start: 20181017, end: 20190125
  45. RITUXIMAB (UNKNOWN) [Suspect]
     Active Substance: RITUXIMAB
     Dosage: 644 MG, UNK
     Route: 041
     Dates: start: 20181101, end: 20181101
  46. RITUXIMAB (UNKNOWN) [Suspect]
     Active Substance: RITUXIMAB
     Dosage: 644 MG, UNK
     Route: 041
     Dates: start: 20181122, end: 20181122
  47. RITUXIMAB (UNKNOWN) [Suspect]
     Active Substance: RITUXIMAB
     Dosage: 644 MG, UNK
     Route: 041
     Dates: start: 20181213, end: 20181213
  48. VINCRISTINE [Suspect]
     Active Substance: VINCRISTINE
     Dosage: 1 MG, (INFUSION RATE 6.6 ML/MIN FROM 12:52 TO 13:13)
     Route: 041
     Dates: start: 20181214, end: 20181214
  49. DOXORUBICIN [Suspect]
     Active Substance: DOXORUBICIN
     Indication: DIFFUSE LARGE B-CELL LYMPHOMA
     Dosage: 43 MG, (INFUSION RATE 2.0 ML/MIN)
     Route: 041
     Dates: start: 20181018, end: 20181018
  50. HCT [Concomitant]
     Active Substance: HYDROCHLOROTHIAZIDE
     Indication: HYPERTENSION
     Dosage: UNK
     Route: 048

REACTIONS (16)
  - White blood cell count decreased [Recovered/Resolved]
  - Cardiac failure [Recovered/Resolved]
  - Duodenal ulcer [Recovered/Resolved]
  - Platelet count decreased [Not Recovered/Not Resolved]
  - Neutrophil count decreased [Recovered/Resolved]
  - Atrial fibrillation [Recovered/Resolved]
  - Neutrophil count decreased [Recovered/Resolved]
  - Cardiac failure [Fatal]
  - Anaemia [Recovered/Resolved]
  - Urinary tract infection staphylococcal [Not Recovered/Not Resolved]
  - Platelet count decreased [Recovered/Resolved]
  - White blood cell count decreased [Not Recovered/Not Resolved]
  - Anaemia [Recovered/Resolved]
  - Platelet count decreased [Recovered/Resolved]
  - Oesophagitis [Recovered/Resolved]
  - Gastritis [Recovered/Resolved]

NARRATIVE: CASE EVENT DATE: 20181106
